FAERS Safety Report 6130530-6 (Version None)
Quarter: 2009Q1

REPORT INFORMATION
  Report Type: 
  Country: None (occurrence: None)
  Receive Date: 20090323
  Receipt Date: 20090309
  Transmission Date: 20090719
  Serious: Yes (Other)
  Sender: FDA-Public Use
  Company Number: 231877K08USA

PATIENT
  Age: 58 Year
  Sex: Female
  Weight: 47 kg

DRUGS (1)
  1. REBIF [Suspect]
     Indication: MULTIPLE SCLEROSIS
     Dates: start: 20061113, end: 20070704

REACTIONS (2)
  - HEPATIC CYST [None]
  - HEPATIC FAILURE [None]
